FAERS Safety Report 7248634-3 (Version None)
Quarter: 2011Q1

REPORT INFORMATION
  Report Type: 
  Country: None (occurrence: None)
  Receive Date: 20110128
  Receipt Date: 20101223
  Transmission Date: 20110831
  Serious: Yes (Other)
  Sender: FDA-Public Use
  Company Number: US-BAYER-2010-007654

PATIENT
  Age: 52 Year
  Sex: Female

DRUGS (10)
  1. ACETYLSALICYLIC ACID SRT [Suspect]
     Dosage: 81 MG, ONCE
  2. ACETYLSALICYLIC ACID SRT [Suspect]
     Dosage: SECOND DOSE
  3. ACETYLSALICYLIC ACID SRT [Suspect]
     Dosage: 3 MG, ONCE
  4. ACETYLSALICYLIC ACID SRT [Suspect]
     Dosage: 30 MG, ONCE
  5. ACETYLSALICYLIC ACID SRT [Suspect]
     Dosage: 0.1 MG, ONCE
  6. ACETYLSALICYLIC ACID SRT [Suspect]
     Dosage: 0.3 MG, ONCE
  7. ACETYLSALICYLIC ACID SRT [Suspect]
     Dosage: 10 MG, ONCE
  8. ACETYLSALICYLIC ACID SRT [Suspect]
     Dosage: 1 MG, ONCE
  9. ACETYLSALICYLIC ACID SRT [Suspect]
     Dosage: FIRST DOSE
  10. ACETYLSALICYLIC ACID SRT [Suspect]
     Dosage: 40 MG, ONCE

REACTIONS (6)
  - HYPERHIDROSIS [None]
  - SWOLLEN TONGUE [None]
  - URTICARIA [None]
  - HYPOTENSION [None]
  - ANGIOEDEMA [None]
  - MEAN ARTERIAL PRESSURE DECREASED [None]
